FAERS Safety Report 7441694-6 (Version None)
Quarter: 2011Q2

REPORT INFORMATION
  Report Type: 
  Country: None (occurrence: None)
  Receive Date: 20110428
  Receipt Date: 20100330
  Transmission Date: 20111010
  Serious: No
  Sender: FDA-Public Use
  Company Number: A0853594A

PATIENT
  Age: 70 Year
  Sex: Male
  Weight: 61.7 kg

DRUGS (4)
  1. PULMICORT [Suspect]
     Route: 065
  2. SEREVENT [Suspect]
     Dates: end: 20100201
  3. XALATAN [Concomitant]
  4. ALVESCO [Suspect]
     Dosage: 320UG TWICE PER DAY
     Dates: start: 20100201

REACTIONS (6)
  - DYSPHONIA [None]
  - EXPIRED DRUG ADMINISTERED [None]
  - MEDICATION ERROR [None]
  - INCREASED UPPER AIRWAY SECRETION [None]
  - THROAT IRRITATION [None]
  - DRY THROAT [None]
